FAERS Safety Report 6971172-X (Version None)
Quarter: 2010Q3

REPORT INFORMATION
  Report Type: 
  Country: None (occurrence: None)
  Receive Date: 20100824
  Receipt Date: 20100513
  Transmission Date: 20110219
  Serious: No
  Sender: FDA-Public Use
  Company Number: 307399

PATIENT
  Age: 43 Year
  Sex: Male

DRUGS (2)
  1. VICTOZA [Suspect]
     Indication: WEIGHT CONTROL
     Dosage: 0.6 MG, QD, SUBCUTANEOUS ; 1.2 MG, QD, SUBCUTANEOUS
     Route: 058
     Dates: end: 20100403
  2. VICTOZA [Suspect]
     Indication: WEIGHT CONTROL
     Dosage: 0.6 MG, QD, SUBCUTANEOUS ; 1.2 MG, QD, SUBCUTANEOUS
     Route: 058
     Dates: start: 20100225

REACTIONS (1)
  - ABDOMINAL DISCOMFORT [None]
